FAERS Safety Report 23321377 (Version 2)
Quarter: 2024Q1

REPORT INFORMATION
  Report Type: Spontaneous
  Country: MY (occurrence: MY)
  Receive Date: 20231220
  Receipt Date: 20240116
  Transmission Date: 20240409
  Serious: Yes (Other)
  Sender: FDA-Public Use
  Company Number: MY-UCBSA-2023059745

PATIENT
  Sex: Female
  Weight: 2.37 kg

DRUGS (25)
  1. LEVETIRACETAM [Suspect]
     Active Substance: LEVETIRACETAM
     Indication: Seizure
     Dosage: 500 MILLIGRAM, 2X/DAY (BID)
     Route: 064
     Dates: start: 201909
  2. LEVETIRACETAM [Suspect]
     Active Substance: LEVETIRACETAM
     Dosage: 750 MILLIGRAM, 2X/DAY (BID)
     Route: 064
     Dates: start: 201911
  3. LEVETIRACETAM [Suspect]
     Active Substance: LEVETIRACETAM
     Dosage: 1 GRAM, 2X/DAY (BID)
     Route: 064
     Dates: start: 201912
  4. LEVETIRACETAM [Suspect]
     Active Substance: LEVETIRACETAM
     Dosage: 500 MILLIGRAM, 2X/DAY (BID)
     Route: 064
     Dates: start: 202007
  5. LEVETIRACETAM [Suspect]
     Active Substance: LEVETIRACETAM
     Dosage: 1 GRAM, 2X/DAY (BID)
     Route: 064
     Dates: start: 202007
  6. LEVETIRACETAM [Suspect]
     Active Substance: LEVETIRACETAM
     Dosage: 1 GRAM, 2X/DAY (BID)
     Route: 064
     Dates: start: 202012
  7. LEVETIRACETAM [Suspect]
     Active Substance: LEVETIRACETAM
     Dosage: 1.5 GRAM, 2X/DAY (BID)
     Route: 064
     Dates: start: 202105
  8. LEVETIRACETAM [Suspect]
     Active Substance: LEVETIRACETAM
     Dosage: 1.5 GRAM, 2X/DAY (BID)
     Route: 064
     Dates: start: 202106
  9. LEVETIRACETAM [Suspect]
     Active Substance: LEVETIRACETAM
     Dosage: 1 GRAM, 2X/DAY (BID)
     Route: 064
     Dates: start: 202111
  10. LEVETIRACETAM [Suspect]
     Active Substance: LEVETIRACETAM
     Dosage: 1 GRAM, 2X/DAY (BID)
     Route: 064
     Dates: start: 202201
  11. LEVETIRACETAM [Suspect]
     Active Substance: LEVETIRACETAM
     Dosage: 1 GRAM, 2X/DAY (BID)
     Route: 064
     Dates: start: 202203
  12. LEVETIRACETAM [Suspect]
     Active Substance: LEVETIRACETAM
     Dosage: 1.25 GRAM, 2X/DAY (BID)
     Route: 064
     Dates: start: 202203
  13. LEVETIRACETAM [Suspect]
     Active Substance: LEVETIRACETAM
     Dosage: 1.5 GRAM, 2X/DAY (BID)
     Route: 064
     Dates: start: 202206
  14. LEVETIRACETAM [Suspect]
     Active Substance: LEVETIRACETAM
     Dosage: 1.5 GRAM, 2X/DAY (BID)
     Route: 064
     Dates: start: 202208
  15. LAMOTRIGINE [Concomitant]
     Active Substance: LAMOTRIGINE
     Indication: Seizure
     Dosage: 50 MILLIGRAM, 2X/DAY (BID)
     Route: 064
     Dates: start: 202012
  16. LAMOTRIGINE [Concomitant]
     Active Substance: LAMOTRIGINE
     Dosage: 100 MILLIGRAM, 2X/DAY (BID)
     Route: 064
     Dates: start: 202105
  17. CLOBAZAM [Concomitant]
     Active Substance: CLOBAZAM
     Indication: Seizure
     Dosage: 5 MILLIGRAM, 2X/DAY (BID)
     Route: 064
  18. CLOBAZAM [Concomitant]
     Active Substance: CLOBAZAM
     Dosage: 5 MILLIGRAM, 2X/DAY (BID)
     Route: 064
     Dates: start: 202111
  19. CLOBAZAM [Concomitant]
     Active Substance: CLOBAZAM
     Dosage: 5 MILLIGRAM, 2X/DAY (BID)
     Route: 064
     Dates: start: 202201
  20. CLOBAZAM [Concomitant]
     Active Substance: CLOBAZAM
     Dosage: 5 MILLIGRAM, 2X/DAY (BID)
     Route: 064
     Dates: start: 202203
  21. CLOBAZAM [Concomitant]
     Active Substance: CLOBAZAM
     Dosage: 10 MILLIGRAM, 2X/DAY (BID)
     Route: 064
     Dates: start: 202206
  22. CLOBAZAM [Concomitant]
     Active Substance: CLOBAZAM
     Dosage: 15 MILLIGRAM, 2X/DAY (BID)
     Route: 064
     Dates: start: 202208
  23. ZONISAMIDE [Concomitant]
     Active Substance: ZONISAMIDE
     Indication: Seizure
     Dosage: 100 MILLIGRAM, ON
     Route: 064
     Dates: start: 202203
  24. TOPIRAMATE [Concomitant]
     Active Substance: TOPIRAMATE
     Indication: Seizure
     Dosage: 25 MILLIGRAM, 2X/DAY (BID)
     Route: 064
     Dates: start: 202206
  25. TOPIRAMATE [Concomitant]
     Active Substance: TOPIRAMATE
     Dosage: 25 MILLIGRAM, 2X/DAY (BID)
     Route: 064
     Dates: start: 202208

REACTIONS (5)
  - Premature baby [Unknown]
  - Low birth weight baby [Unknown]
  - Apgar score low [Unknown]
  - Maternal exposure before pregnancy [Unknown]
  - Maternal exposure during pregnancy [Unknown]

NARRATIVE: CASE EVENT DATE: 20190901
